FAERS Safety Report 6305951-9 (Version None)
Quarter: 2009Q3

REPORT INFORMATION
  Report Type: 
  Country: None (occurrence: None)
  Receive Date: 20090812
  Receipt Date: 20090803
  Transmission Date: 20100115
  Serious: Yes (Hospitalization, Other)
  Sender: FDA-Public Use
  Company Number: US-AMGEN-QUU356744

PATIENT
  Sex: Male
  Weight: 95.8 kg

DRUGS (11)
  1. ENBREL [Suspect]
     Indication: RHEUMATOID ARTHRITIS
     Route: 058
     Dates: start: 20031201, end: 20090430
  2. METHOTREXATE [Suspect]
     Route: 048
     Dates: start: 20030101, end: 20090430
  3. FOLIC ACID [Concomitant]
     Dates: start: 20030101
  4. GABAPENTIN [Concomitant]
     Dates: start: 20050101
  5. ALBUTEROL [Concomitant]
     Dates: start: 19900101
  6. PEPCID [Concomitant]
     Dates: start: 20030101
  7. ADVAIR HFA [Concomitant]
     Dates: start: 20030101
  8. HYDROCHLOROTHIAZIDE [Concomitant]
     Dates: start: 20050801
  9. ASTELIN [Concomitant]
     Dates: start: 20050101
  10. PROTONIX [Concomitant]
     Dates: start: 20070901
  11. ASPIRIN [Concomitant]
     Dates: start: 20050101

REACTIONS (32)
  - ACTINIC KERATOSIS [None]
  - ASTHMA [None]
  - BASAL CELL CARCINOMA [None]
  - BRONCHITIS [None]
  - CHILLS [None]
  - COLONIC POLYP [None]
  - DEPRESSION [None]
  - DIVERTICULITIS [None]
  - DIVERTICULUM [None]
  - FAECAL INCONTINENCE [None]
  - FATIGUE [None]
  - HIATUS HERNIA [None]
  - HYPOAESTHESIA [None]
  - INSOMNIA [None]
  - JOINT SWELLING [None]
  - LUNG INFECTION PSEUDOMONAL [None]
  - LYMPH NODE CALCIFICATION [None]
  - MALIGNANT MELANOMA [None]
  - MUSCULOSKELETAL PAIN [None]
  - NOCTURIA [None]
  - OSTEOPENIA [None]
  - PARAESTHESIA [None]
  - PERIPHERAL VASCULAR DISORDER [None]
  - PNEUMONIA STAPHYLOCOCCAL [None]
  - PYREXIA [None]
  - RHINITIS [None]
  - SEBORRHOEIC KERATOSIS [None]
  - SPINAL DISORDER [None]
  - TINEA CRURIS [None]
  - TREMOR [None]
  - URINARY INCONTINENCE [None]
  - WEIGHT DECREASED [None]
